FAERS Safety Report 8276844-5 (Version None)
Quarter: 2012Q2

REPORT INFORMATION
  Report Type: 
  Country: None (occurrence: None)
  Receive Date: 20120409
  Receipt Date: 20120330
  Transmission Date: 20120825
  Serious: Yes (Other)
  Sender: FDA-Public Use
  Company Number: 2012SP017570

PATIENT
  Age: 40 Year

DRUGS (6)
  1. LENDORM [Suspect]
     Indication: PRODUCT USED FOR UNKNOWN INDICATION
  2. URSO 250 [Suspect]
     Indication: PRODUCT USED FOR UNKNOWN INDICATION
  3. RHYTHMY (RILMAZAFONE HYDROCHLORIDE) (RILMAZAFONE HYDROCHLORIDE) [Suspect]
     Indication: PRODUCT USED FOR UNKNOWN INDICATION
  4. PEG-INTRON [Suspect]
     Indication: HEPATITIS C
     Dosage: 1.5 MCG/KG;QW;SC
     Route: 058
  5. DEPAS (ETIZOLAM) [Suspect]
     Indication: PRODUCT USED FOR UNKNOWN INDICATION
  6. REBETOL [Suspect]
     Indication: HEPATITIS C
     Dosage: PO
     Route: 048

REACTIONS (1)
  - CONFUSIONAL STATE [None]
